FAERS Safety Report 11696555 (Version 3)
Quarter: 2015Q4

REPORT INFORMATION
  Report Type: Spontaneous
  Country: IT (occurrence: IT)
  Receive Date: 20151104
  Receipt Date: 20151211
  Transmission Date: 20160304
  Serious: Yes (Hospitalization, Other)
  Sender: FDA-Public Use
  Company Number: IT-PFIZER INC-2015370887

PATIENT
  Age: 36 Year
  Sex: Male

DRUGS (8)
  1. ABILIFY [Suspect]
     Active Substance: ARIPIPRAZOLE
     Dosage: 3 BLISTERS AT A SINGLE TIME
     Route: 048
     Dates: start: 20150910, end: 20150910
  2. ZOLOFT [Suspect]
     Active Substance: SERTRALINE HYDROCHLORIDE
     Dosage: UNK
     Route: 048
  3. ZOLOFT [Suspect]
     Active Substance: SERTRALINE HYDROCHLORIDE
     Dosage: 3 BLISTERS AT A SINGLE TIME
     Route: 048
     Dates: start: 20150910, end: 20150910
  4. RIVOTRIL [Suspect]
     Active Substance: CLONAZEPAM
     Dosage: UNK
     Route: 048
  5. DEPAKIN [Suspect]
     Active Substance: VALPROATE SODIUM
     Dosage: 3 BLISTERS AT A SINGLE TIME
     Route: 048
     Dates: start: 20150910, end: 20150910
  6. RIVOTRIL [Suspect]
     Active Substance: CLONAZEPAM
     Dosage: 20 DOSAGE FORMS AT A SINGLE TIME
     Route: 048
     Dates: start: 20150910, end: 20150910
  7. DEPAKIN [Suspect]
     Active Substance: VALPROATE SODIUM
     Dosage: UNK
     Route: 048
  8. ABILIFY [Suspect]
     Active Substance: ARIPIPRAZOLE
     Dosage: UNK
     Route: 048

REACTIONS (5)
  - Sopor [Recovering/Resolving]
  - Self-injurious ideation [Unknown]
  - Frustration [Unknown]
  - Overdose [Recovering/Resolving]
  - Intentional self-injury [Recovering/Resolving]

NARRATIVE: CASE EVENT DATE: 20150901
